FAERS Safety Report 10085409 (Version 1)
Quarter: 2014Q2

REPORT INFORMATION
  Report Type: Report from Study
  Country: KR (occurrence: KR)
  Receive Date: 20140418
  Receipt Date: 20140418
  Transmission Date: 20141212
  Serious: Yes (Other)
  Sender: FDA-Public Use
  Company Number: KR-ROCHE-1386014

PATIENT
  Sex: 0

DRUGS (2)
  1. PEG-INTERFERON ALFA 2A [Suspect]
     Indication: CHRONIC HEPATITIS C
     Route: 065
  2. RIBAVIRIN [Concomitant]
     Indication: CHRONIC HEPATITIS C
     Route: 065

REACTIONS (1)
  - Basedow^s disease [Recovered/Resolved]
